FAERS Safety Report 8119238-5 (Version None)
Quarter: 2012Q1

REPORT INFORMATION
  Report Type: 
  Country: None (occurrence: None)
  Receive Date: 20120207
  Receipt Date: 20110518
  Transmission Date: 20120608
  Serious: Yes (Hospitalization)
  Sender: FDA-Public Use
  Company Number: CA-CELGENEUS-028-21880-11052436

PATIENT
  Sex: Female
  Weight: 64 kg

DRUGS (21)
  1. ASPIRIN [Concomitant]
     Indication: ANTICOAGULANT THERAPY
     Dosage: 81 MILLIGRAM
     Route: 048
     Dates: start: 20090101, end: 20110426
  2. ALBUTEROL SULFATE AUTOHALER [Concomitant]
     Dosage: 100 MICROGRAM
     Route: 055
     Dates: start: 20100101
  3. KYTRIL [Concomitant]
     Indication: NAUSEA
     Dosage: 1 MILLIGRAM
     Route: 048
     Dates: start: 20090825, end: 20110426
  4. RANITIDINE [Concomitant]
     Dosage: 150 MILLIGRAM
     Route: 048
     Dates: start: 20090728
  5. PREDNISONE [Suspect]
     Indication: MULTIPLE MYELOMA
     Dosage: 50 MILLIGRAM/SQ. METER
     Route: 065
     Dates: start: 20090630, end: 20110426
  6. NEUPOGEN [Concomitant]
     Indication: NEUTROPENIA
     Dosage: 300 MILLIGRAM
     Route: 058
     Dates: start: 20100727
  7. CENTRUM SELECT 50+ [Concomitant]
     Indication: VITAMIN SUPPLEMENTATION
     Dosage: 1 TABLET
     Route: 048
     Dates: start: 20080101
  8. AMITRIPTYLINE HCL [Concomitant]
     Indication: INSOMNIA
     Dosage: 10 MILLIGRAM
     Route: 048
     Dates: start: 20090630
  9. CRESTOR [Concomitant]
     Dosage: 5 MILLIGRAM
     Route: 048
     Dates: start: 20090101
  10. SEPTRA DS [Concomitant]
     Indication: INFECTION PROPHYLAXIS
     Dosage: 1 TABLET
     Route: 048
     Dates: start: 20100504
  11. FENTANYL CITRATE [Concomitant]
     Indication: PAIN MANAGEMENT
     Dosage: 2 MILLIGRAM
     Dates: start: 20080401
  12. VITAMIN B-12 [Concomitant]
     Indication: VITAMIN SUPPLEMENTATION
     Dosage: 1000 MILLIGRAM
     Route: 048
     Dates: start: 20080101
  13. VITAMIN D [Concomitant]
     Indication: VITAMIN SUPPLEMENTATION
     Dosage: 1000 IU (INTERNATIONAL UNIT)
     Route: 048
     Dates: start: 20080101
  14. IPRATROPIUM BROMIDE [Concomitant]
     Dosage: 0.3 CC
     Route: 065
     Dates: start: 20100101
  15. LATANOPROST [Concomitant]
     Indication: GLAUCOMA
     Dosage: 1 DROPS
     Dates: start: 20100101
  16. QUININE SULFATE [Concomitant]
     Dosage: 300 MILLIGRAM
     Route: 048
     Dates: start: 20091020
  17. HYDROMORPH CONTIN [Concomitant]
     Indication: PAIN MANAGEMENT
     Dosage: 3 MILLIGRAM
     Route: 048
     Dates: start: 20090630
  18. CYCLOPHOSPHAMIDE [Suspect]
     Indication: MULTIPLE MYELOMA
     Dosage: 100 MILLIGRAM/SQ. METER
     Route: 065
     Dates: start: 20090630, end: 20110426
  19. TYLENOL W/ CODEINE NO. 3 [Concomitant]
     Indication: PAIN MANAGEMENT
     Dosage: 30 MILLIGRAM
     Route: 048
     Dates: start: 20080401
  20. REVLIMID [Suspect]
     Indication: MULTIPLE MYELOMA
     Dosage: 15 MILLIGRAM
     Route: 048
     Dates: start: 20090630, end: 20110426
  21. RANITIDINE [Concomitant]

REACTIONS (1)
  - CYSTITIS HAEMORRHAGIC [None]
